FAERS Safety Report 17275098 (Version 1)
Quarter: 2020Q1

REPORT INFORMATION
  Report Type: Spontaneous
  Country: ES (occurrence: ES)
  Receive Date: 20200116
  Receipt Date: 20200116
  Transmission Date: 20200409
  Serious: Yes (Other)
  Sender: FDA-Public Use
  Company Number: ES-009507513-2001ESP004365

PATIENT
  Age: 67 Year
  Sex: Male

DRUGS (1)
  1. CEFTOLOZANE SULFATE  (+) TAZOBACTAM SODIUM [Suspect]
     Active Substance: CEFTOLOZANE SULFATE\TAZOBACTAM SODIUM
     Dosage: 3 G/24 H
     Route: 042
     Dates: start: 20190417, end: 20190428

REACTIONS (1)
  - Transaminases increased [Recovered/Resolved]

NARRATIVE: CASE EVENT DATE: 20190425
